FAERS Safety Report 10908868 (Version 1)
Quarter: 2015Q1

REPORT INFORMATION
  Report Type: Spontaneous
  Country: None (occurrence: None)
  Receive Date: 20150310
  Receipt Date: 20150310
  Transmission Date: 20150721
  Serious: No
  Sender: FDA-Public Use
  Company Number: None

PATIENT
  Age: 73 Year
  Sex: Female
  Weight: 64.86 kg

DRUGS (16)
  1. PANTOPRAZOLE [Concomitant]
     Active Substance: PANTOPRAZOLE SODIUM
  2. NITROGLYCERIN. [Concomitant]
     Active Substance: NITROGLYCERIN
  3. SENNA LAXATIVE [Concomitant]
     Active Substance: SENNOSIDES A AND B
  4. LEVEMIR FLEX-TOUCH [Concomitant]
  5. STOOL SOFTENER [Concomitant]
     Active Substance: DOCUSATE CALCIUM
  6. INSULIN [Concomitant]
     Active Substance: INSULIN NOS
  7. AMIODIPINE [Concomitant]
  8. VITAMIN D [Concomitant]
     Active Substance: CHOLECALCIFEROL
  9. ASPIRIN. [Concomitant]
     Active Substance: ASPIRIN
  10. LEVOTHYROXINE [Concomitant]
     Active Substance: LEVOTHYROXINE
  11. LISINOPROLOL [Concomitant]
  12. FENTANYL. [Suspect]
     Active Substance: FENTANYL
     Indication: PRODUCT USED FOR UNKNOWN INDICATION
     Dosage: STRENGTH: 75 MCG,  :  1 PATCH EVERY 72 HOURS, FREQUENCY: 1-72 HRS, ROUTE: SKIN
  13. BUMETANIDE. [Concomitant]
     Active Substance: BUMETANIDE
  14. CIOPIDOGREL [Concomitant]
  15. METOPROLOL [Concomitant]
     Active Substance: METOPROLOL
  16. ONDANSETRON [Concomitant]
     Active Substance: ONDANSETRON

REACTIONS (1)
  - Product adhesion issue [None]
